FAERS Safety Report 4826871-2 (Version None)
Quarter: 2005Q4

REPORT INFORMATION
  Report Type: 
  Country: None (occurrence: None)
  Receive Date: 20051114
  Receipt Date: 20051101
  Transmission Date: 20060501
  Serious: Yes (Hospitalization, Other)
  Sender: FDA-Public Use
  Company Number: US-AMGEN-US155679

PATIENT
  Sex: Male

DRUGS (12)
  1. EPOGEN [Suspect]
     Indication: DIALYSIS
     Route: 058
     Dates: start: 20030324
  2. ARANESP [Suspect]
     Indication: DIALYSIS
     Route: 058
     Dates: start: 20050511, end: 20050511
  3. PROCRIT [Suspect]
     Indication: DIALYSIS
     Route: 058
     Dates: start: 20050804, end: 20050804
  4. AMLODIPINE [Concomitant]
  5. SENSIPAR [Concomitant]
     Indication: HYPERPARATHYROIDISM SECONDARY
     Dates: start: 20050401, end: 20050801
  6. IRBESARTAN [Concomitant]
  7. METOPROLOL [Concomitant]
  8. PANTOPRAZOLE [Concomitant]
  9. QUINAPRIL [Concomitant]
  10. FOSRENOL [Concomitant]
     Dates: start: 20050401, end: 20050801
  11. MINOXIDIL [Concomitant]
  12. RENAGEL [Concomitant]
     Dates: end: 20050401

REACTIONS (3)
  - BONE MARROW FAILURE [None]
  - THERAPEUTIC RESPONSE DECREASED [None]
  - THROMBOCYTOPENIA [None]
